FAERS Safety Report 7040265-3 (Version None)
Quarter: 2010Q4

REPORT INFORMATION
  Report Type: 
  Country: None (occurrence: None)
  Receive Date: 20101012
  Receipt Date: 20101005
  Transmission Date: 20110411
  Serious: Yes (Other)
  Sender: FDA-Public Use
  Company Number: US-PFIZER INC-2010127429

PATIENT
  Sex: Female

DRUGS (1)
  1. CELEBREX [Suspect]
     Indication: BACK INJURY

REACTIONS (5)
  - BLISTER [None]
  - BLISTER INFECTED [None]
  - NERVE INJURY [None]
  - OEDEMA PERIPHERAL [None]
  - SKIN DISCOLOURATION [None]
